FAERS Safety Report 8604982 (Version 3)
Quarter: 2013Q3

REPORT INFORMATION
  Report Type: Spontaneous
  Country: BR (occurrence: BR)
  Receive Date: 20120608
  Receipt Date: 20130910
  Transmission Date: 20140515
  Serious: Yes (Disabling, Other)
  Sender: FDA-Public Use
  Company Number: BR-ASTRAZENECA-2012SE36575

PATIENT
  Age: 68 Year
  Sex: Male
  Weight: 87 kg

DRUGS (10)
  1. NEXIUM [Suspect]
     Indication: GASTRITIS
     Route: 048
     Dates: start: 2005, end: 201205
  2. NEXIUM [Suspect]
     Indication: GASTRITIS
     Dosage: 40 MG BY MORNING AND 20 MG AT NIGHT
     Route: 048
     Dates: start: 201205, end: 201205
  3. NEXIUM [Suspect]
     Indication: GASTRITIS
     Route: 048
     Dates: start: 201205
  4. PROPRANOLOL [Suspect]
     Indication: ARRHYTHMIA
     Route: 048
     Dates: end: 201308
  5. CRESTOR [Suspect]
     Indication: BLOOD CHOLESTEROL INCREASED
     Route: 048
     Dates: start: 1998
  6. SELOZOK [Suspect]
     Indication: ARRHYTHMIA
     Route: 048
     Dates: start: 201308
  7. ASPIRIN PREVENT [Concomitant]
     Route: 048
  8. MOTILIUM [Concomitant]
     Route: 048
  9. DIUPRES [Concomitant]
     Route: 048
  10. CARDIZEM [Concomitant]
     Route: 048

REACTIONS (6)
  - Hypoacusis [Not Recovered/Not Resolved]
  - Road traffic accident [Unknown]
  - Gastritis [Recovered/Resolved]
  - Bronchospasm [Recovered/Resolved]
  - Intentional drug misuse [Recovered/Resolved]
  - Off label use [Not Recovered/Not Resolved]
